FAERS Safety Report 24996501 (Version 1)
Quarter: 2025Q1

REPORT INFORMATION
  Report Type: Spontaneous
  Country: US (occurrence: US)
  Receive Date: 20250221
  Receipt Date: 20250221
  Transmission Date: 20250408
  Serious: Yes (Hospitalization, Other)
  Sender: CSL BEHRING
  Company Number: US-BEH-2025196341

PATIENT
  Age: 67 Year
  Sex: Female

DRUGS (1)
  1. HUMAN IMMUNOGLOBULIN G [Suspect]
     Active Substance: HUMAN IMMUNOGLOBULIN G
     Indication: Mixed connective tissue disease
     Route: 042

REACTIONS (13)
  - Myocarditis [Recovering/Resolving]
  - Cardiomyopathy [Recovering/Resolving]
  - Distributive shock [Recovering/Resolving]
  - Multiple organ dysfunction syndrome [Recovering/Resolving]
  - Neutropenia [Recovering/Resolving]
  - Drug hypersensitivity [Recovering/Resolving]
  - Left ventricular dysfunction [Recovering/Resolving]
  - Myalgia [Recovering/Resolving]
  - Off label use [Unknown]
  - Hypotension [Recovering/Resolving]
  - Fatigue [Recovering/Resolving]
  - Pyrexia [Recovering/Resolving]
  - Troponin increased [Recovering/Resolving]
